FAERS Safety Report 25232819 (Version 1)
Quarter: 2025Q2

REPORT INFORMATION
  Report Type: Report from Study
  Country: US (occurrence: US)
  Receive Date: 20250424
  Receipt Date: 20250424
  Transmission Date: 20250716
  Serious: Yes (Other)
  Sender: TAKEDA
  Company Number: US-TAKEDA-2025TUS009673

PATIENT
  Age: 33 Year
  Sex: Male

DRUGS (2)
  1. FRUQUINTINIB [Suspect]
     Active Substance: FRUQUINTINIB
     Indication: Rectal cancer
  2. FRUQUINTINIB [Suspect]
     Active Substance: FRUQUINTINIB

REACTIONS (10)
  - Rectal cancer [Unknown]
  - Blood pressure abnormal [Unknown]
  - Dry skin [Unknown]
  - Blister [Unknown]
  - Memory impairment [Unknown]
  - Product dose omission in error [Unknown]
  - Skin exfoliation [Unknown]
  - Fatigue [Unknown]
  - Pain in extremity [Unknown]
  - Oral pain [Unknown]

NARRATIVE: CASE EVENT DATE: 20250101
